FAERS Safety Report 5441857-5 (Version None)
Quarter: 2007Q3

REPORT INFORMATION
  Report Type: 
  Country: None (occurrence: None)
  Receive Date: 20070904
  Receipt Date: 20070823
  Transmission Date: 20080115
  Serious: Yes (Hospitalization)
  Sender: FDA-Public Use
  Company Number: US-AMGEN-US240111

PATIENT
  Sex: Female

DRUGS (2)
  1. ENBREL [Suspect]
     Indication: RHEUMATOID ARTHRITIS
     Route: 058
     Dates: start: 20030124
  2. METHOTREXATE [Concomitant]
     Route: 065
     Dates: start: 20030101

REACTIONS (3)
  - ANKLE FRACTURE [None]
  - FALL [None]
  - FEMUR FRACTURE [None]
